FAERS Safety Report 4657292-3 (Version None)
Quarter: 2005Q2

REPORT INFORMATION
  Report Type: 
  Country: None (occurrence: None)
  Receive Date: 20050506
  Receipt Date: 20050429
  Transmission Date: 20051028
  Serious: Yes (Hospitalization, Other)
  Sender: FDA-Public Use
  Company Number: USA-2004-0013500

PATIENT
  Age: 53 Year
  Sex: Female

DRUGS (29)
  1. OXYCONTIN [Suspect]
     Dosage: 80 MG, DAILY
     Dates: start: 20001001, end: 20030301
  2. OXYCODONE HCL [Suspect]
     Dates: start: 20001001, end: 20030301
  3. PERCOCET [Suspect]
     Dates: start: 20001001, end: 20030301
  4. DETROL [Concomitant]
  5. PRILOSEC [Concomitant]
  6. NEURONTIN (GABAPATIN) [Concomitant]
  7. SULFASALAZINE [Concomitant]
  8. ENBREL (ESTANERCEPT) [Concomitant]
  9. AMITRIPTYLINE HCL [Concomitant]
  10. EVISTA [Concomitant]
  11. IMIPRAMINE [Concomitant]
  12. NASAREL (FLUNISOLIDE) [Concomitant]
  13. MONOPRIL [Concomitant]
  14. CELEBREX [Concomitant]
  15. AMBIEN [Concomitant]
  16. PROZAC [Concomitant]
  17. FLONASE [Concomitant]
  18. FOSAMAX [Concomitant]
  19. CLARITIN [Concomitant]
  20. PREVACID [Concomitant]
  21. MAALOX (MAGNESIUM HYDROXIDE, ALUMINIUM HYDROXIDE GEL) [Concomitant]
  22. EFFEXPR (VENLAFAXINE HYDROCHLORIDE) [Concomitant]
  23. CARAFATE [Concomitant]
  24. DAYPRO [Concomitant]
  25. CORTIZONE (HYDROCORTISONE) [Concomitant]
  26. PREDNISONE [Concomitant]
  27. METHOTREXATE [Concomitant]
  28. PIROXICAM [Concomitant]
  29. METHOCARBAMOL [Concomitant]

REACTIONS (55)
  - ABASIA [None]
  - AFFECT LABILITY [None]
  - ALOPECIA [None]
  - ANGER [None]
  - ARTHRALGIA [None]
  - AUTOIMMUNE DISORDER [None]
  - BACK PAIN [None]
  - BURSITIS [None]
  - COMMUNICATION DISORDER [None]
  - CONFUSIONAL STATE [None]
  - CONSTIPATION [None]
  - CYST [None]
  - DEPRESSION [None]
  - DISEASE RECURRENCE [None]
  - DRUG DEPENDENCE [None]
  - DRUG EFFECT DECREASED [None]
  - DRUG INEFFECTIVE [None]
  - DYSPHAGIA [None]
  - DYSURIA [None]
  - FAT TISSUE INCREASED [None]
  - FLAT AFFECT [None]
  - FLATULENCE [None]
  - FRACTURE [None]
  - HELICOBACTER INFECTION [None]
  - IMPAIRED GASTRIC EMPTYING [None]
  - IMPAIRED HEALING [None]
  - INJURY [None]
  - INSOMNIA [None]
  - INTERNAL HERNIA [None]
  - LYMPHADENOPATHY [None]
  - MASTICATION DISORDER [None]
  - MENTAL DISORDER [None]
  - MENTAL IMPAIRMENT [None]
  - MICTURITION URGENCY [None]
  - MOOD SWINGS [None]
  - MUSCULOSKELETAL STIFFNESS [None]
  - NEURALGIA [None]
  - NODULE [None]
  - OBTURATOR HERNIA [None]
  - OESOPHAGITIS [None]
  - OSTEOARTHRITIS [None]
  - OSTEOPENIA [None]
  - OVARIAN ABSCESS [None]
  - OVARIAN CYST [None]
  - PAIN IN EXTREMITY [None]
  - PELVIC PAIN [None]
  - POLLAKIURIA [None]
  - POLYSUBSTANCE ABUSE [None]
  - PUBIC PAIN [None]
  - RHINITIS [None]
  - STOMATITIS [None]
  - SUICIDAL IDEATION [None]
  - TREMOR [None]
  - WEIGHT DECREASED [None]
  - WEIGHT INCREASED [None]
